FAERS Safety Report 20946295 (Version 2)
Quarter: 2022Q3

REPORT INFORMATION
  Report Type: Spontaneous
  Country: RU (occurrence: RU)
  Receive Date: 20220610
  Receipt Date: 20220714
  Transmission Date: 20221026
  Serious: Yes (Other)
  Sender: FDA-Public Use
  Company Number: RU-BIOGEN-2022BI01125053

PATIENT
  Sex: Male

DRUGS (1)
  1. TYSABRI [Suspect]
     Active Substance: NATALIZUMAB
     Indication: Relapsing-remitting multiple sclerosis
     Route: 050

REACTIONS (2)
  - Progressive multifocal leukoencephalopathy [Unknown]
  - Off label use [Unknown]

NARRATIVE: CASE EVENT DATE: 20220501
